FAERS Safety Report 9032523 (Version 3)
Quarter: 2013Q1

REPORT INFORMATION
  Report Type: Report from Study
  Country: BR (occurrence: BR)
  Receive Date: 20130125
  Receipt Date: 20130201
  Transmission Date: 20140127
  Serious: Yes (Other)
  Sender: FDA-Public Use
  Company Number: BR-ABBOTT-13P-020-1039988-00

PATIENT
  Sex: Female
  Weight: 71 kg

DRUGS (7)
  1. HUMIRA [Suspect]
     Indication: CROHN^S DISEASE
     Dosage: WEEK 0
     Route: 058
     Dates: start: 20120726
  2. HUMIRA [Suspect]
     Dosage: WEEK 2
     Route: 058
  3. HUMIRA [Suspect]
     Route: 058
  4. AZATHIOPRINE [Concomitant]
     Indication: CROHN^S DISEASE
     Dosage: 2 TABLETS DAILY
     Route: 048
     Dates: start: 20120815
  5. IRON POLYMALTOSE [Concomitant]
     Indication: ANAEMIA
     Route: 014
     Dates: start: 201208
  6. CYANOCOBALAMIN/PYRIDOXINE HYDROCHLORIDE/THIAMINE NITRATE (CITONEURIN) [Concomitant]
     Indication: ANAEMIA
     Route: 048
     Dates: start: 201208
  7. FOLIC ACID [Concomitant]
     Indication: ANAEMIA
     Route: 048
     Dates: start: 201208

REACTIONS (6)
  - Convulsion [Recovered/Resolved]
  - Fatigue [Not Recovered/Not Resolved]
  - Pyrexia [Not Recovered/Not Resolved]
  - Feeling cold [Not Recovered/Not Resolved]
  - Diarrhoea [Not Recovered/Not Resolved]
  - Weight increased [Unknown]
